FAERS Safety Report 7788282-X (Version None)
Quarter: 2011Q3

REPORT INFORMATION
  Report Type: 
  Country: None (occurrence: None)
  Receive Date: 20110930
  Receipt Date: 20110921
  Transmission Date: 20111222
  Serious: Yes (Hospitalization, Other)
  Sender: FDA-Public Use
  Company Number: CA-JNJFOC-20110801623

PATIENT
  Sex: Female
  Weight: 58.8 kg

DRUGS (14)
  1. VITAMINS NOS [Concomitant]
     Route: 065
  2. COUMADIN [Concomitant]
     Route: 065
  3. REMICADE [Suspect]
     Route: 042
     Dates: start: 20071106
  4. VITAMIN B COMPLEX CAP [Concomitant]
     Route: 065
  5. IRON [Concomitant]
     Route: 065
  6. PREDNISONE [Concomitant]
     Route: 065
  7. MAGNESIUM [Concomitant]
     Route: 065
  8. PROBIOTIC [Concomitant]
     Route: 065
  9. IMODIUM [Concomitant]
  10. REMICADE [Suspect]
     Indication: CROHN'S DISEASE
     Dosage: 27TH INFUSION
     Route: 042
  11. POTASSIUM [Concomitant]
     Route: 065
  12. RABEPRAZOLE SODIUM [Concomitant]
     Route: 065
  13. QUININE SULFATE [Concomitant]
     Route: 065
  14. DEMEROL [Concomitant]

REACTIONS (4)
  - HAEMORRHAGE [None]
  - PSORIASIS [None]
  - ECZEMA [None]
  - BLOOD IRON DECREASED [None]
